FAERS Safety Report 9661180 (Version 2)
Quarter: 2016Q4

REPORT INFORMATION
  Report Type: Report from Study
  Country: US (occurrence: US)
  Receive Date: 20131031
  Receipt Date: 20161220
  Transmission Date: 20170207
  Serious: Yes (Other)
  Sender: FDA-Public Use
  Company Number: US-ROCHE-1294963

PATIENT
  Sex: Male

DRUGS (8)
  1. MICARDIS [Concomitant]
     Active Substance: TELMISARTAN
  2. ALLOPURINOL. [Concomitant]
     Active Substance: ALLOPURINOL
  3. PRED FORTE [Concomitant]
     Active Substance: PREDNISOLONE ACETATE
  4. NEVANAC [Concomitant]
     Active Substance: NEPAFENAC
  5. AVASTIN [Suspect]
     Active Substance: BEVACIZUMAB
     Indication: NEOVASCULAR AGE-RELATED MACULAR DEGENERATION
     Dosage: MOST RECENT 05-JUN-2013
     Route: 065
     Dates: start: 20110809
  6. LUMIGAN [Concomitant]
     Active Substance: BIMATOPROST
  7. XALATAN [Concomitant]
     Active Substance: LATANOPROST
  8. COMBIGAN [Concomitant]
     Active Substance: BRIMONIDINE TARTRATE\TIMOLOL MALEATE

REACTIONS (5)
  - Cystoid macular oedema [Unknown]
  - Eye disorder [Unknown]
  - Migraine with aura [Unknown]
  - Diplopia [Unknown]
  - Off label use [Unknown]
